FAERS Safety Report 9272328 (Version 1)
Quarter: 2013Q2

REPORT INFORMATION
  Report Type: Spontaneous
  Country: US (occurrence: US)
  Receive Date: 20130506
  Receipt Date: 20130506
  Transmission Date: 20140414
  Serious: No
  Sender: FDA-Public Use
  Company Number: US-ASTRAZENECA-2013SE21546

PATIENT
  Age: 81 Year
  Sex: Female

DRUGS (2)
  1. PRILOSEC OTC [Suspect]
     Route: 048
  2. PRILOSEC OTC [Suspect]
     Dosage: 1-2 TABLET DAILY
     Route: 048

REACTIONS (4)
  - Gingival pain [Unknown]
  - Oral disorder [Unknown]
  - Incorrect dose administered [Unknown]
  - Glossodynia [Unknown]
